FAERS Safety Report 7739449-8 (Version None)
Quarter: 2011Q3

REPORT INFORMATION
  Report Type: 
  Country: None (occurrence: None)
  Receive Date: 20110909
  Receipt Date: 20110902
  Transmission Date: 20111222
  Serious: Yes (Other)
  Sender: FDA-Public Use
  Company Number: US-BAYER-2011-073930

PATIENT
  Age: 59 Year
  Sex: Male

DRUGS (2)
  1. SORAFENIB (RAF KINASE INHIBITOR) [Suspect]
     Dosage: 400 MG, HS
     Route: 048
     Dates: start: 20110801
  2. SORAFENIB (RAF KINASE INHIBITOR) [Suspect]
     Indication: HEPATIC NEOPLASM MALIGNANT
     Dosage: 400 MG, BID
     Route: 048
     Dates: start: 20110801

REACTIONS (8)
  - DECREASED APPETITE [None]
  - CONFUSIONAL STATE [None]
  - ABDOMINAL PAIN UPPER [None]
  - NAUSEA [None]
  - HYPERSOMNIA [None]
  - LETHARGY [None]
  - DYSPHONIA [None]
  - APHAGIA [None]
